FAERS Safety Report 8064553-7 (Version None)
Quarter: 2012Q1

REPORT INFORMATION
  Report Type: 
  Country: None (occurrence: None)
  Receive Date: 20120123
  Receipt Date: 20120116
  Transmission Date: 20120608
  Serious: Yes (Hospitalization)
  Sender: FDA-Public Use
  Company Number: US-US-EMD SERONO, INC.-7085412

PATIENT
  Sex: Female

DRUGS (4)
  1. XANAX [Concomitant]
     Indication: ANXIETY
  2. FLEXERIL [Concomitant]
     Indication: MUSCLE SPASMS
  3. ULTRAM [Concomitant]
     Indication: PAIN
  4. REBIF [Suspect]
     Indication: MULTIPLE SCLEROSIS
     Route: 058
     Dates: start: 20060629, end: 20120107

REACTIONS (9)
  - DEPRESSION [None]
  - UNEVALUABLE EVENT [None]
  - HYPERSENSITIVITY [None]
  - ROAD TRAFFIC ACCIDENT [None]
  - STRESS [None]
  - INJECTION SITE HAEMATOMA [None]
  - INAPPROPRIATE SCHEDULE OF DRUG ADMINISTRATION [None]
  - JC VIRUS TEST POSITIVE [None]
  - WEIGHT DECREASED [None]
